FAERS Safety Report 10188999 (Version 2)
Quarter: 2014Q2

REPORT INFORMATION
  Report Type: Spontaneous
  Country: CA (occurrence: CA)
  Receive Date: 20140522
  Receipt Date: 20140529
  Transmission Date: 20141212
  Serious: Yes (Death, Hospitalization)
  Sender: FDA-Public Use
  Company Number: PHHY2014CA061991

PATIENT
  Age: 73 Year
  Sex: Female

DRUGS (8)
  1. EVEROLIMUS [Suspect]
     Indication: BREAST CANCER METASTATIC
     Dosage: 10 MG, UNK
     Route: 048
     Dates: start: 20140424, end: 20140508
  2. EXEMESTANE [Concomitant]
     Indication: BREAST CANCER METASTATIC
     Dosage: UNK
     Dates: start: 20140424
  3. PANTOLOC [Concomitant]
  4. CYMBALTA [Concomitant]
  5. TYLENOL [Concomitant]
  6. DEXAMETHASONE [Concomitant]
     Dosage: UNK
     Dates: start: 201404
  7. CLODRONATE DISODIUM [Concomitant]
  8. ZOFRAN [Concomitant]
     Dosage: UNK
     Dates: start: 201404

REACTIONS (10)
  - Death [Fatal]
  - Alveolar lung disease [Unknown]
  - Pleural effusion [Unknown]
  - Pulmonary hypertension [Unknown]
  - Dyspnoea [Unknown]
  - Toxicity to various agents [Unknown]
  - Mucosal inflammation [Unknown]
  - Hypophagia [Unknown]
  - Pyrexia [Unknown]
  - Electrolyte imbalance [Recovering/Resolving]
